FAERS Safety Report 24438046 (Version 1)
Quarter: 2024Q4

REPORT INFORMATION
  Report Type: Spontaneous
  Country: US (occurrence: None)
  Receive Date: 20241014
  Receipt Date: 20241014
  Transmission Date: 20250114
  Serious: Yes (Hospitalization)
  Sender: Public
  Company Number: None

PATIENT
  Sex: Female

DRUGS (3)
  1. OPSUMIT [Suspect]
     Active Substance: MACITENTAN
     Indication: Pulmonary arterial hypertension
     Dosage: FREQUENCY : DAILY;?
     Route: 048
     Dates: start: 202403
  2. TADALAFIL [Concomitant]
     Active Substance: TADALAFIL
  3. REMODULIN [Concomitant]

REACTIONS (5)
  - Oedema [None]
  - Fluid retention [None]
  - Viral infection [None]
  - Therapy interrupted [None]
  - Weight abnormal [None]
